FAERS Safety Report 17276137 (Version 4)
Quarter: 2020Q1

REPORT INFORMATION
  Report Type: Spontaneous
  Country: JP (occurrence: JP)
  Receive Date: 20200116
  Receipt Date: 20200317
  Transmission Date: 20200409
  Serious: Yes (Life-Threatening, Hospitalization, Other)
  Sender: FDA-Public Use
  Company Number: JP-009507513-2001JPN000799J

PATIENT
  Age: 79 Year
  Sex: Male
  Weight: 67 kg

DRUGS (16)
  1. CARBOPLATIN. [Suspect]
     Active Substance: CARBOPLATIN
     Indication: NON-SMALL CELL LUNG CANCER
     Dosage: 360 MILLIGRAM, ONCE
     Route: 041
     Dates: start: 20191224
  2. FOLIAMIN [Concomitant]
     Active Substance: FOLIC ACID
     Dosage: 0.1 DOSAGE FORM X 1
     Route: 048
  3. ALIMTA [Suspect]
     Active Substance: PEMETREXED DISODIUM
     Indication: NON-SMALL CELL LUNG CANCER
     Dosage: 880 MILLIGRAM, ONCE
     Route: 041
     Dates: start: 20191224
  4. CRESTOR [Concomitant]
     Active Substance: ROSUVASTATIN CALCIUM
     Dosage: 5 MILLIGRAM X 1
     Route: 048
  5. TAKECAB [Concomitant]
     Active Substance: VONOPRAZAN FUMURATE
     Dosage: 10 MILLIGRAM X 1
     Route: 048
  6. MOHRUS TAPE L [Concomitant]
     Active Substance: KETOPROFEN
     Dosage: UNK
     Route: 065
  7. KEYTRUDA [Suspect]
     Active Substance: PEMBROLIZUMAB
     Indication: NON-SMALL CELL LUNG CANCER
     Dosage: 200 MILLIGRAM, Q3W
     Route: 041
     Dates: start: 20191224
  8. BORRAZA-G [Concomitant]
     Active Substance: LIDOCAINE\TRIBENOSIDE
     Dosage: UNK, PRN
     Route: 051
  9. CARBOPLATIN. [Suspect]
     Active Substance: CARBOPLATIN
     Dosage: 270 MILLIGRAM, TWICE
     Route: 041
     Dates: start: 20200121
  10. PREMINENT TABLETS LD [Concomitant]
     Active Substance: HYDROCHLOROTHIAZIDE\LOSARTAN POTASSIUM
     Dosage: 1 DOSAGE FORM X 1
     Route: 048
  11. NEUROVITAN [Concomitant]
     Active Substance: VITAMINS
     Dosage: 1 DOSAGE FORM X 3
     Route: 048
  12. DELUX-C [Concomitant]
     Dosage: 1 P X 3
     Route: 065
  13. ALIMTA [Suspect]
     Active Substance: PEMETREXED DISODIUM
     Dosage: 680 MILLIGRAM, ONCE
     Route: 041
     Dates: start: 20200121
  14. SOLANAX [Concomitant]
     Active Substance: ALPRAZOLAM
     Dosage: UNK, PRN
     Route: 048
  15. DEXART [Concomitant]
     Active Substance: DEXAMETHASONE SODIUM PHOSPHATE
     Dosage: 4.95 MILLIGRAM
     Route: 051
     Dates: start: 20191224, end: 20191224
  16. DECADRON [Concomitant]
     Active Substance: DEXAMETHASONE
     Dosage: 4 MILLIGRAM, UNK
     Route: 048
     Dates: start: 20191225, end: 20191227

REACTIONS (4)
  - Cytopenia [Recovered/Resolved]
  - Hyponatraemia [Recovering/Resolving]
  - Inappropriate antidiuretic hormone secretion [Recovering/Resolving]
  - Bone marrow failure [Recovered/Resolved]

NARRATIVE: CASE EVENT DATE: 20191230
